FAERS Safety Report 14229700 (Version 1)
Quarter: 2017Q4

REPORT INFORMATION
  Report Type: Spontaneous
  Country: US (occurrence: None)
  Receive Date: 20171127
  Receipt Date: 20171127
  Transmission Date: 20180321
  Serious: Yes (Hospitalization)
  Sender: FDA-Public Use
  Company Number: None

PATIENT
  Sex: Male

DRUGS (10)
  1. ZYTIGA [Suspect]
     Active Substance: ABIRATERONE ACETATE
     Indication: PROSTATE CANCER
     Dosage: FREQUENCY - 4QD
     Route: 048
     Dates: start: 20131206
  2. VB12 [Concomitant]
  3. CYMBALTA [Concomitant]
     Active Substance: DULOXETINE HYDROCHLORIDE
  4. DOXAZOSIN [Concomitant]
     Active Substance: DOXAZOSIN\DOXAZOSIN MESYLATE
  5. GABAPENTIN. [Concomitant]
     Active Substance: GABAPENTIN
  6. WARFARIN [Concomitant]
     Active Substance: WARFARIN
  7. ROPINOROL [Concomitant]
  8. ZETIA [Concomitant]
     Active Substance: EZETIMIBE
  9. LANTUS [Concomitant]
     Active Substance: INSULIN GLARGINE
  10. METOPROLOL. [Concomitant]
     Active Substance: METOPROLOL

REACTIONS (2)
  - Surgery [None]
  - Drug dose omission [None]
